FAERS Safety Report 8810048 (Version 2)
Quarter: 2012Q4

REPORT INFORMATION
  Report Type: 
  Country: US (occurrence: US)
  Receive Date: 20120926
  Receipt Date: 20121024
  Transmission Date: 20130627
  Serious: Yes (Death)
  Sender: FDA-Public Use
  Company Number: US-GLAXOSMITHKLINE-A0994967A

PATIENT
  Age: 78 Year
  Sex: Female

DRUGS (1)
  1. FLOLAN [Suspect]
     Indication: PULMONARY ARTERIAL HYPERTENSION
     Dosage: 34.5NGKM Continuous
     Route: 065
     Dates: start: 199911

REACTIONS (8)
  - Septic shock [Fatal]
  - Depressed level of consciousness [Unknown]
  - General physical health deterioration [Unknown]
  - Abdominal distension [Unknown]
  - Abdominal pain [Unknown]
  - Decreased appetite [Unknown]
  - Device related infection [Unknown]
  - Multi-organ failure [Unknown]
